FAERS Safety Report 5983184-3 (Version None)
Quarter: 2008Q4

REPORT INFORMATION
  Report Type: 
  Country: None (occurrence: None)
  Receive Date: 20081205
  Receipt Date: 20081205
  Transmission Date: 20090506
  Serious: Yes (Life-Threatening, Hospitalization, Disabling, Other)
  Sender: FDA-Public Use
  Company Number: None

PATIENT
  Age: 45 Year
  Sex: Male
  Weight: 69.4003 kg

DRUGS (5)
  1. GABAPENTIN [Suspect]
     Indication: EPILEPSY
     Dosage: 800MGS. 3-DAILY B-D-S
  2. GABAPENTIN [Suspect]
     Indication: PETIT MAL EPILEPSY
     Dosage: 800MGS. 3-DAILY B-D-S
  3. PHENYTOIN EX [Concomitant]
  4. DEPAKOTE [Concomitant]
  5. DILANTIN [Concomitant]

REACTIONS (2)
  - GUN SHOT WOUND [None]
  - SUICIDE ATTEMPT [None]
